FAERS Safety Report 9508600 (Version 1)
Quarter: 2013Q3

REPORT INFORMATION
  Report Type: Report from Study
  Country: CN (occurrence: CN)
  Receive Date: 20130909
  Receipt Date: 20130909
  Transmission Date: 20140515
  Serious: Yes (Other)
  Sender: FDA-Public Use
  Company Number: CN-BAXTER-2013BAX035348

PATIENT
  Sex: 0

DRUGS (11)
  1. QIFUMEI [Suspect]
     Indication: MAINTENANCE OF ANAESTHESIA
  2. LIDOCAINE [Suspect]
     Indication: PRODUCT USED FOR UNKNOWN INDICATION
  3. ROPIVACAINE [Suspect]
     Indication: EPIDURAL ANAESTHESIA
  4. ROPIVACAINE [Suspect]
     Dosage: DURING SURGERY
  5. PROPOFOL [Suspect]
     Indication: INDUCTION OF ANAESTHESIA
     Dosage: 1.5 TO 2.0 MG/KG
     Route: 042
  6. PROPOFOL [Suspect]
     Indication: MAINTENANCE OF ANAESTHESIA
     Route: 042
  7. SUFENTANIL [Suspect]
     Indication: INDUCTION OF ANAESTHESIA
     Route: 042
  8. ROCURONIUM [Suspect]
     Indication: ENDOTRACHEAL INTUBATION
     Route: 042
  9. REMIFENTANIL [Suspect]
     Indication: MAINTENANCE OF ANAESTHESIA
     Route: 042
  10. REMIFENTANIL [Suspect]
     Indication: PAIN MANAGEMENT
     Route: 042
  11. REMIFENTANIL [Suspect]

REACTIONS (1)
  - Haemorrhage [Unknown]
